FAERS Safety Report 9741824 (Version 1)
Quarter: 2013Q4

REPORT INFORMATION
  Report Type: Spontaneous
  Country: FR (occurrence: FR)
  Receive Date: 20131210
  Receipt Date: 20131210
  Transmission Date: 20140711
  Serious: Yes (Hospitalization)
  Sender: FDA-Public Use
  Company Number: PHHY2013FR143172

PATIENT
  Age: 41 Year
  Sex: Female

DRUGS (9)
  1. VOLTARENE [Suspect]
     Indication: BACK PAIN
     Dosage: UNK UKN, UNK
     Route: 048
     Dates: start: 201310
  2. VOLTARENE EMULGEL [Suspect]
     Indication: BACK PAIN
     Dosage: 1 %, UNK
     Route: 003
     Dates: start: 201310
  3. VENLAFAXINE [Suspect]
     Dosage: 37.5 MG, UNK
     Route: 048
  4. DIVARIUS [Suspect]
     Dosage: UNK UKN, UNK
     Route: 048
     Dates: start: 20120505, end: 20131009
  5. LOVENOX [Suspect]
     Dosage: UNK UKN, UNK
     Route: 058
     Dates: start: 20131008, end: 20131008
  6. NEURONTIN [Concomitant]
     Dosage: 1 DF, TID
  7. LYSANXIA [Concomitant]
     Dosage: UNK UKN, UNK
  8. TOPALGIC [Concomitant]
     Dosage: UNK UKN, UNK
  9. GILENYA [Concomitant]
     Dosage: UNK UKN, UNK
     Dates: start: 201204

REACTIONS (2)
  - Haematoma [Not Recovered/Not Resolved]
  - Condition aggravated [Not Recovered/Not Resolved]
